FAERS Safety Report 7264196-9 (Version None)
Quarter: 2011Q1

REPORT INFORMATION
  Report Type: 
  Country: None (occurrence: None)
  Receive Date: 20110131
  Receipt Date: 20110124
  Transmission Date: 20110831
  Serious: No
  Sender: FDA-Public Use
  Company Number: US-BIOGENIDEC-2010BI011336

PATIENT
  Age: 43 Year
  Sex: Female

DRUGS (5)
  1. GABAPENTIN [Concomitant]
     Route: 048
  2. BACLOFEN [Concomitant]
     Route: 048
  3. GABAPENTIN [Concomitant]
     Indication: GENERAL SYMPTOM
     Route: 048
  4. TYSABRI [Suspect]
     Indication: MULTIPLE SCLEROSIS
     Route: 042
     Dates: start: 20091102
  5. BACLOFEN [Concomitant]
     Indication: MUSCLE SPASMS
     Route: 048

REACTIONS (5)
  - DYSSTASIA [None]
  - MUSCULOSKELETAL DISORDER [None]
  - ARTHRALGIA [None]
  - MUSCULAR WEAKNESS [None]
  - AMNESIA [None]
